FAERS Safety Report 4640644-5 (Version None)
Quarter: 2005Q2

REPORT INFORMATION
  Report Type: 
  Country: None (occurrence: None)
  Receive Date: 20050419
  Receipt Date: 20050406
  Transmission Date: 20051028
  Serious: Yes (Other)
  Sender: FDA-Public Use
  Company Number: 2005056699

PATIENT
  Age: 83 Year
  Sex: Female

DRUGS (9)
  1. PRAZOSIN GITS [Suspect]
     Indication: ILL-DEFINED DISORDER
     Dosage: 2 MG (2 MG DAILY)
     Dates: end: 20020802
  2. ALDACTONE [Suspect]
     Indication: ILL-DEFINED DISORDER
     Dosage: 100 MG (100 MG, DAILY), ORAL
     Route: 048
     Dates: end: 20020802
  3. ENALAPRIL NM (ENALAPRIL) [Suspect]
     Indication: ILL-DEFINED DISORDER
     Dosage: 20 MG (20 MG, DAILY), ORAL
     Route: 048
     Dates: end: 20020801
  4. FENOSPEN (PHENOXYMETHYLPENICILLIN) [Suspect]
     Indication: ILL-DEFINED DISORDER
     Dosage: 2 GRAM (2 GRAM, DAILY), ORAL
     Route: 048
     Dates: end: 20020803
  5. FLOXACILLIN SODIUM [Suspect]
     Indication: ILL-DEFINED DISORDER
     Dosage: 1.5 GRAM (1.5 GRAM, DAILY), ORAL
     Route: 048
     Dates: end: 20020802
  6. ALLOPURINOL [Suspect]
     Indication: ILL-DEFINED DISORDER
     Dosage: 100 MG (100 MG)
     Dates: end: 20020802
  7. FUROSEMIDE [Concomitant]
  8. DIGOXIN [Concomitant]
  9. FOLIC ACID [Concomitant]

REACTIONS (1)
  - HYPERKALAEMIA [None]
